FAERS Safety Report 5138491-3 (Version None)
Quarter: 2006Q4

REPORT INFORMATION
  Report Type: 
  Country: None (occurrence: None)
  Receive Date: 20061030
  Receipt Date: 20060302
  Transmission Date: 20070319
  Serious: No
  Sender: FDA-Public Use
  Company Number: US-GLAXOSMITHKLINE-A0595894A

PATIENT
  Age: 68 Year
  Sex: Female

DRUGS (5)
  1. ADVAIR HFA [Suspect]
     Indication: CHRONIC OBSTRUCTIVE PULMONARY DISEASE
     Dosage: 1PUFF TWICE PER DAY
     Route: 055
     Dates: start: 20010101
  2. NEXIUM [Concomitant]
  3. SPIRIVA [Concomitant]
  4. OXYGEN [Concomitant]
  5. MYLANTA [Concomitant]

REACTIONS (4)
  - BONE PAIN [None]
  - EYE DISORDER [None]
  - GASTRIC PH DECREASED [None]
  - THERAPEUTIC RESPONSE DECREASED [None]
